FAERS Safety Report 4601778-4 (Version None)
Quarter: 2005Q1

REPORT INFORMATION
  Report Type: 
  Country: None (occurrence: None)
  Receive Date: 20050128
  Receipt Date: 20031208
  Transmission Date: 20050727
  Serious: Yes (Hospitalization)
  Sender: FDA-Public Use
  Company Number: 136748USA

PATIENT
  Age: 49 Year
  Sex: Female
  Weight: 81.6475 kg

DRUGS (2)
  1. COPAXONE [Suspect]
     Indication: RELAPSING-REMITTING MULTIPLE SCLEROSIS
     Dosage: 20 MILLIGRAM QD SUBCUTANEOUS
     Route: 058
     Dates: start: 20020516, end: 20030430
  2. METOPROLOL [Concomitant]

REACTIONS (1)
  - PANCREATITIS [None]
